FAERS Safety Report 14984159 (Version 1)
Quarter: 2018Q2

REPORT INFORMATION
  Report Type: Spontaneous
  Country: US (occurrence: US)
  Receive Date: 20180517
  Receipt Date: 20180517
  Transmission Date: 20180711
  Serious: Yes (Disabling)
  Sender: FDA-Public Use
  Company Number: None

PATIENT
  Age: 22 Year
  Sex: Female
  Weight: 58.5 kg

DRUGS (4)
  1. TRIAMCINOLONE [Suspect]
     Active Substance: TRIAMCINOLONE
  2. DEXAMETHASONE. [Suspect]
     Active Substance: DEXAMETHASONE
  3. HYDROCORTISONE. [Suspect]
     Active Substance: HYDROCORTISONE
     Indication: DERMATITIS ATOPIC
     Dosage: QUANTITY:10 10;OTHER FREQUENCY:ALL DAY ON SKIN;?
     Route: 061
     Dates: start: 19990420
  4. PROTOPIC [Suspect]
     Active Substance: TACROLIMUS

REACTIONS (12)
  - Skin exfoliation [None]
  - Multiple allergies [None]
  - Burning sensation [None]
  - Inflammation [None]
  - Steroid withdrawal syndrome [None]
  - Impaired work ability [None]
  - Erythema [None]
  - Sleep disorder [None]
  - Immunosuppression [None]
  - Quality of life decreased [None]
  - Asthma [None]
  - Skin abrasion [None]

NARRATIVE: CASE EVENT DATE: 19990420
